FAERS Safety Report 5244423-X (Version None)
Quarter: 2007Q1

REPORT INFORMATION
  Report Type: 
  Country: None (occurrence: None)
  Receive Date: 20070222
  Receipt Date: 20070213
  Transmission Date: 20070707
  Serious: Yes (Other)
  Sender: FDA-Public Use
  Company Number: AU-PFIZER INC-2006106368

PATIENT
  Sex: Female
  Weight: 78 kg

DRUGS (2)
  1. LIPITOR [Suspect]
     Indication: BLOOD CHOLESTEROL INCREASED
     Route: 048
     Dates: start: 20050101, end: 20050301
  2. OROXINE [Concomitant]
     Indication: HYPOTHYROIDISM
     Route: 048

REACTIONS (7)
  - AMNESIA [None]
  - CHEST DISCOMFORT [None]
  - COGNITIVE DISORDER [None]
  - HEADACHE [None]
  - INSOMNIA [None]
  - MYALGIA [None]
  - RESTLESSNESS [None]
